FAERS Safety Report 23319958 (Version 2)
Quarter: 2024Q1

REPORT INFORMATION
  Report Type: Spontaneous
  Country: US (occurrence: US)
  Receive Date: 20231220
  Receipt Date: 20240123
  Transmission Date: 20240409
  Serious: Yes (Death)
  Sender: FDA-Public Use
  Company Number: US-IMMUNOCORE, LTD.-2023-IMC-002105

PATIENT
  Age: 71 Year
  Sex: Female

DRUGS (1)
  1. KIMMTRAK [Suspect]
     Active Substance: TEBENTAFUSP-TEBN
     Indication: Metastatic ocular melanoma
     Dosage: 20 MICROGRAM/DOSE 1

REACTIONS (1)
  - Cytokine release syndrome [Fatal]
